FAERS Safety Report 7807117-X (Version None)
Quarter: 2011Q4

REPORT INFORMATION
  Report Type: 
  Country: None (occurrence: None)
  Receive Date: 20111011
  Receipt Date: 20110930
  Transmission Date: 20120403
  Serious: Yes (Other)
  Sender: FDA-Public Use
  Company Number: PHFR2011GB03285

PATIENT
  Sex: Male

DRUGS (2)
  1. CLOZAPINE [Suspect]
     Indication: SCHIZOPHRENIA
     Dosage: 250 MG/DAY
     Route: 048
     Dates: start: 20110414
  2. DEPAKOTE [Concomitant]
     Dosage: 500 MG/DAY
     Route: 048

REACTIONS (2)
  - GASTROINTESTINAL CARCINOMA [None]
  - HAEMOGLOBIN DECREASED [None]
